FAERS Safety Report 6358935-9 (Version None)
Quarter: 2009Q3

REPORT INFORMATION
  Report Type: 
  Country: None (occurrence: None)
  Receive Date: 20090914
  Receipt Date: 20090828
  Transmission Date: 20100115
  Serious: Yes (Life-Threatening, Other)
  Sender: FDA-Public Use
  Company Number: 2009002613

PATIENT
  Age: 48 Year
  Sex: Male

DRUGS (16)
  1. ERLOTINIB HYDROCHLORIDE [Suspect]
     Indication: LUNG ADENOCARCINOMA
     Dosage: (150 MG, QD), ORAL
     Route: 048
     Dates: start: 20090420, end: 20090621
  2. VOLTAREN [Concomitant]
  3. SELBEX (TEPRENONE) [Concomitant]
  4. FAMOTIDINE [Concomitant]
  5. PREDNISOLONE [Concomitant]
  6. GABAPEN [Concomitant]
  7. MAGMITT [Concomitant]
  8. LENDORM [Concomitant]
  9. DEPAS (ETIZOLAM) [Concomitant]
  10. DUROTEP [Concomitant]
  11. OPSO [Concomitant]
  12. AMOXAPINE [Concomitant]
  13. KETOPROFEN [Concomitant]
  14. OXINORM (ORGOTEIN) [Concomitant]
  15. RISPERDAL [Concomitant]
  16. ACETAMINOPHEN [Concomitant]

REACTIONS (3)
  - GENERAL PHYSICAL HEALTH DETERIORATION [None]
  - HYPOALBUMINAEMIA [None]
  - PERFORMANCE STATUS DECREASED [None]
